FAERS Safety Report 15206069 (Version 1)
Quarter: 2018Q4

REPORT INFORMATION
  Report Type: Report from Study
  Country: IT (occurrence: IT)
  Receive Date: 20180727
  Receipt Date: 20180727
  Transmission Date: 20190204
  Serious: Yes (Hospitalization)
  Sender: FDA-Public Use
  Company Number: IT-TEVA-2018-IT-930851

PATIENT
  Age: 84 Year
  Sex: Male

DRUGS (8)
  1. ONBREZ BREEZHALER 150 MICROGRAM INHALATION POWDER, HARD CAPSULES [Concomitant]
     Route: 065
  2. VALSARTAN. [Concomitant]
     Active Substance: VALSARTAN
     Route: 065
  3. SIMVASTATIN. [Concomitant]
     Active Substance: SIMVASTATIN
     Route: 065
  4. LOSARTAN. [Suspect]
     Active Substance: LOSARTAN
     Route: 065
  5. CARDIOASPIRIN 100 MG COMPRESSE GASTRORESISTENTI [Concomitant]
     Active Substance: ASPIRIN
     Route: 065
  6. LANSOX 15 MG CAPSULE RIGIDE [Concomitant]
     Route: 065
  7. DIAMOX 250 MG COMPRESSE [Suspect]
     Active Substance: ACETAZOLAMIDE
     Route: 065
     Dates: start: 20180610, end: 20180616
  8. SEEBRI BREEZHALER 44 MICROGRAMS INHALATION POWDER, HARD CAPSULES [Concomitant]
     Route: 065

REACTIONS (2)
  - Dehydration [Recovering/Resolving]
  - Renal failure [Recovering/Resolving]

NARRATIVE: CASE EVENT DATE: 20180614
